FAERS Safety Report 8362939-4 (Version None)
Quarter: 2012Q1

REPORT INFORMATION
  Report Type: 
  Country: None (occurrence: None)
  Receive Date: 20120323
  Receipt Date: 20110418
  Transmission Date: 20120608
  Serious: Yes (Life-Threatening, Disabling, Other)
  Sender: FDA-Public Use
  Company Number: 163-21880-11023215

PATIENT
  Age: 78 Year
  Sex: Male

DRUGS (7)
  1. PREDNISONE TAB [Concomitant]
  2. REVLIMID [Suspect]
     Indication: MYELODYSPLASTIC SYNDROME
     Dosage: 10 MG, 1 IN 1 D, PO; 5 MG, 1 IN 1 D, PO
     Route: 048
     Dates: start: 20100701, end: 20101130
  3. REVLIMID [Suspect]
     Indication: MYELODYSPLASTIC SYNDROME
     Dosage: 10 MG, 1 IN 1 D, PO; 5 MG, 1 IN 1 D, PO
     Route: 048
     Dates: start: 20100617
  4. LIPITOR [Concomitant]
  5. CARTIA (ACETYLSALICYLIC AICD) [Concomitant]
  6. TRIAMTERENE/HCTZ (DYAZIDE) [Concomitant]
  7. DIOVAN (CO-DIOVAN) [Concomitant]

REACTIONS (3)
  - THROMBOCYTOPENIA [None]
  - HAEMOGLOBIN DECREASED [None]
  - WHITE BLOOD CELL COUNT DECREASED [None]
